FAERS Safety Report 7313781-4 (Version None)
Quarter: 2011Q1

REPORT INFORMATION
  Report Type: 
  Country: None (occurrence: None)
  Receive Date: 20110225
  Receipt Date: 20110223
  Transmission Date: 20110831
  Serious: Yes (Other)
  Sender: FDA-Public Use
  Company Number: US-PFIZER INC-2011039945

PATIENT
  Sex: Male
  Weight: 65.8 kg

DRUGS (2)
  1. ESIDRIX [Concomitant]
     Indication: HYPERTENSION
     Dosage: 25 MG, UNK
  2. CHANTIX [Suspect]
     Indication: SMOKING CESSATION THERAPY
     Dosage: 0.5 MG, 1X/DAY
     Route: 048
     Dates: start: 20110214, end: 20110220

REACTIONS (2)
  - OCULAR VASCULAR DISORDER [None]
  - EYE HAEMORRHAGE [None]
